FAERS Safety Report 8887233 (Version 1)
Quarter: 2012Q4

REPORT INFORMATION
  Report Type: 
  Country: DE (occurrence: DE)
  Receive Date: 20121105
  Receipt Date: 20121105
  Transmission Date: 20130627
  Serious: Yes (Death)
  Sender: FDA-Public Use
  Company Number: DE-TEVA-366904GER

PATIENT
  Age: 66 Year
  Sex: Male

DRUGS (6)
  1. COTRIM FORTE-RATIOPHARM 960 MG TABLETTEN [Suspect]
     Indication: ANTIFUNGAL PROPHYLAXIS
     Dosage: Sulfamethoxazol + trimethoprim
     Route: 065
  2. PROGRAF [Concomitant]
     Indication: IMMUNOSUPPRESSANT DRUG THERAPY
     Dosage: 15 Milligram Daily;
     Route: 065
  3. CELLCEPT [Concomitant]
     Indication: IMMUNOSUPPRESSANT DRUG THERAPY
     Dosage: 2 Gram Daily;
     Route: 065
  4. ZEFFIX [Concomitant]
     Indication: ANTIVIRAL PROPHYLAXIS
     Dosage: 100 Milligram Daily;
     Route: 065
  5. PANTOZOL [Concomitant]
     Route: 065
  6. HEPARIN [Concomitant]
     Indication: ANTICOAGULANT THERAPY
     Dosage: Prophylactic dose
     Route: 065

REACTIONS (5)
  - Multi-organ failure [Fatal]
  - Stevens-Johnson syndrome [Not Recovered/Not Resolved]
  - Toxic epidermal necrolysis [Not Recovered/Not Resolved]
  - Acute respiratory distress syndrome [None]
  - Renal failure [None]
